FAERS Safety Report 19482537 (Version 1)
Quarter: 2021Q3

REPORT INFORMATION
  Report Type: Spontaneous
  Country: US (occurrence: US)
  Receive Date: 20210701
  Receipt Date: 20210701
  Transmission Date: 20211014
  Serious: Yes (Other)
  Sender: FDA-Public Use
  Company Number: US-SA-2021SA213140

PATIENT

DRUGS (2)
  1. ALPROLIX [Suspect]
     Active Substance: EFTRENONACOG ALFA
     Indication: HAEMOPHILIA
     Dosage: UNK, PRN
  2. ALPROLIX [Suspect]
     Active Substance: EFTRENONACOG ALFA
     Indication: HAEMOPHILIA
     Dosage: UNK, PRN

REACTIONS (2)
  - Factor IX inhibition [Unknown]
  - Hypersensitivity [Unknown]
